FAERS Safety Report 17966432 (Version 3)
Quarter: 2020Q4

REPORT INFORMATION
  Report Type: Spontaneous
  Country: US (occurrence: US)
  Receive Date: 20200630
  Receipt Date: 20201114
  Transmission Date: 20210113
  Serious: Yes (Life-Threatening, Hospitalization, Other)
  Sender: FDA-Public Use
  Company Number: US-AMGEN-USASP2020101593

PATIENT
  Age: 54 Year
  Sex: Female

DRUGS (1)
  1. OTEZLA [Suspect]
     Active Substance: APREMILAST
     Indication: BEHCET^S SYNDROME
     Dosage: 30 MILLIGRAM, BID
     Route: 048
     Dates: start: 20200122

REACTIONS (2)
  - Thrombosis [Not Recovered/Not Resolved]
  - Behcet^s syndrome [Not Recovered/Not Resolved]

NARRATIVE: CASE EVENT DATE: 2020
